FAERS Safety Report 20801244 (Version 1)
Quarter: 2022Q2

REPORT INFORMATION
  Report Type: Spontaneous
  Country: US (occurrence: None)
  Receive Date: 20220506
  Receipt Date: 20220506
  Transmission Date: 20220721
  Serious: Yes (Other)
  Sender: FDA-Public Use
  Company Number: None

PATIENT
  Age: 40 Year
  Sex: Female
  Weight: 48 kg

DRUGS (1)
  1. BEBTELOVIMAB [Suspect]
     Active Substance: BEBTELOVIMAB
     Indication: COVID-19
     Dosage: FREQUENCY : ONCE;?
     Route: 042
     Dates: start: 20220505, end: 20220505

REACTIONS (7)
  - Pruritus [None]
  - Urticaria [None]
  - Nausea [None]
  - Vomiting [None]
  - Seizure [None]
  - Aura [None]
  - Infusion related reaction [None]

NARRATIVE: CASE EVENT DATE: 20220505
